FAERS Safety Report 10433886 (Version 2)
Quarter: 2014Q3

REPORT INFORMATION
  Report Type: Spontaneous
  Country: SA (occurrence: SA)
  Receive Date: 20140905
  Receipt Date: 20140911
  Transmission Date: 20150326
  Serious: Yes (Other)
  Sender: FDA-Public Use
  Company Number: SA-PFIZER INC-2014245412

PATIENT
  Age: 21 Year
  Sex: Male

DRUGS (5)
  1. ASPIRIN. [Interacting]
     Active Substance: ASPIRIN
     Indication: TOOTHACHE
     Dosage: 500 MG, UNK
  2. TRAMADOL [Concomitant]
     Active Substance: TRAMADOL
     Indication: BONE PAIN
     Dosage: 100 MG, AS NEEDED
  3. PANTOPRAZOLE [Interacting]
     Active Substance: PANTOPRAZOLE SODIUM
     Indication: PEPTIC ULCER
     Dosage: 40 MG, UNK
  4. SULFAMETHOXAZOLE AND TRIMETHOPRIM [Interacting]
     Active Substance: SULFAMETHOXAZOLE\TRIMETHOPRIM
     Indication: URINARY TRACT INFECTION
     Dosage: 160/800 MG, UNK
  5. METHOTREXATE SODIUM. [Suspect]
     Active Substance: METHOTREXATE SODIUM
     Indication: OSTEOSARCOMA
     Dosage: 12 G/M2 HIGH-DOSE, UNK

REACTIONS (2)
  - Toxicity to various agents [Unknown]
  - Drug interaction [Unknown]
